FAERS Safety Report 7852260-2 (Version None)
Quarter: 2011Q4

REPORT INFORMATION
  Report Type: 
  Country: None (occurrence: None)
  Receive Date: 20111026
  Receipt Date: 20111014
  Transmission Date: 20120403
  Serious: Yes (Hospitalization, Other)
  Sender: FDA-Public Use
  Company Number: DE-ELI_LILLY_AND_COMPANY-DE201110003397

PATIENT
  Age: 85 Year
  Sex: Female

DRUGS (3)
  1. VITALUX PLUS [Concomitant]
     Dosage: UNK, QD
  2. FORTEO [Suspect]
     Indication: OSTEOPOROSIS
     Dosage: UNK, QD
     Route: 058
     Dates: start: 20110713
  3. ANALGESICS [Concomitant]
     Dosage: UNK, QD

REACTIONS (2)
  - FALL [None]
  - UPPER LIMB FRACTURE [None]
